FAERS Safety Report 24285666 (Version 1)
Quarter: 2024Q3

REPORT INFORMATION
  Report Type: Spontaneous
  Country: JP (occurrence: JP)
  Receive Date: 20240905
  Receipt Date: 20240905
  Transmission Date: 20241016
  Serious: Yes (Other)
  Sender: BAYER
  Company Number: JP-BAYER-2024A124731

PATIENT
  Age: 58 Year
  Sex: Male

DRUGS (4)
  1. NUBEQA [Suspect]
     Active Substance: DAROLUTAMIDE
     Indication: Prostate cancer metastatic
  2. DOCETAXEL [Suspect]
     Active Substance: DOCETAXEL\DOCETAXEL ANHYDROUS
     Dosage: 75MG/M?
  3. DEGARELIX ACETATE [Suspect]
     Active Substance: DEGARELIX ACETATE
  4. PEGFILGRASTIM [Suspect]
     Active Substance: PEGFILGRASTIM

REACTIONS (7)
  - Renal impairment [Recovered/Resolved]
  - White blood cell count decreased [None]
  - Nephropathy toxic [Recovered/Resolved]
  - Hepatic function abnormal [None]
  - Taste disorder [None]
  - Blood creatinine increased [None]
  - Oedema peripheral [Recovering/Resolving]
